FAERS Safety Report 21149657 (Version 3)
Quarter: 2023Q4

REPORT INFORMATION
  Report Type: Spontaneous
  Country: JP (occurrence: JP)
  Receive Date: 20220729
  Receipt Date: 20231221
  Transmission Date: 20240110
  Serious: Yes (Death, Other)
  Sender: FDA-Public Use
  Company Number: JP-ABBVIE-22K-087-4487267-00

PATIENT

DRUGS (6)
  1. VENCLEXTA [Suspect]
     Active Substance: VENETOCLAX
     Indication: Acute myeloid leukaemia
     Route: 048
  2. AZACITIDINE [Suspect]
     Active Substance: AZACITIDINE
     Indication: Acute myeloid leukaemia
     Route: 065
  3. RASBURICASE [Concomitant]
     Active Substance: RASBURICASE
     Indication: Prophylaxis
  4. PEGFILGRASTIM [Concomitant]
     Active Substance: PEGFILGRASTIM
     Indication: Product used for unknown indication
  5. RAMOSETRON HYDROCHLORIDE [Concomitant]
     Active Substance: RAMOSETRON HYDROCHLORIDE
     Indication: Prophylaxis
     Dosage: FORM STRENGTH: 0.1 MILLIGRAM
  6. FEBUXOSTAT [Concomitant]
     Active Substance: FEBUXOSTAT
     Indication: Prophylaxis
     Dosage: FORM STRENGTH: 20 MILLIGRAM

REACTIONS (32)
  - Blastic plasmacytoid dendritic cell neoplasia [Fatal]
  - Febrile neutropenia [Unknown]
  - Bone marrow failure [Unknown]
  - Acute myeloid leukaemia [Unknown]
  - Cerebral infarction [Unknown]
  - Cachexia [Unknown]
  - Impaired healing [Unknown]
  - Clostridium difficile colitis [Unknown]
  - Tumour associated fever [Unknown]
  - Malaise [Unknown]
  - Full blood count decreased [Unknown]
  - Organising pneumonia [Unknown]
  - Diverticulitis [Unknown]
  - Malnutrition [Unknown]
  - Substance-induced psychotic disorder [Unknown]
  - Rehabilitation therapy [Unknown]
  - Neutrophil count decreased [Unknown]
  - Nausea [Recovering/Resolving]
  - Decreased appetite [Unknown]
  - Tumour lysis syndrome [Unknown]
  - Pneumonia [Unknown]
  - Muscular weakness [Unknown]
  - Listless [Unknown]
  - Red blood cell count decreased [Unknown]
  - Central venous catheterisation [Unknown]
  - Hypoalbuminaemia [Unknown]
  - Oxygen therapy [Unknown]
  - Platelet count decreased [Unknown]
  - Mental disorder [Unknown]
  - Pyrexia [Unknown]
  - Drug ineffective [Unknown]
  - Delirium [Unknown]
